FAERS Safety Report 9087228 (Version 1)
Quarter: 2013Q1

REPORT INFORMATION
  Report Type: Report from Study
  Country: US (occurrence: US)
  Receive Date: 20130130
  Receipt Date: 20130130
  Transmission Date: 20140127
  Serious: No
  Sender: FDA-Public Use
  Company Number: US-ABBOTT-12P-163-0980922-00

PATIENT
  Sex: Female
  Weight: 99.88 kg

DRUGS (1)
  1. HUMIRA [Suspect]
     Indication: RHEUMATOID ARTHRITIS
     Dates: start: 201207

REACTIONS (5)
  - Arthralgia [Unknown]
  - Respiratory tract congestion [Unknown]
  - Insomnia [Unknown]
  - Headache [Unknown]
  - Contusion [Unknown]
